FAERS Safety Report 14240813 (Version 1)
Quarter: 2017Q4

REPORT INFORMATION
  Report Type: Spontaneous
  Country: ES (occurrence: ES)
  Receive Date: 20171130
  Receipt Date: 20171130
  Transmission Date: 20180321
  Serious: Yes (Other)
  Sender: FDA-Public Use
  Company Number: ES-GILEAD-2017-0306993

PATIENT
  Age: 45 Year
  Sex: Male

DRUGS (4)
  1. RITONAVIR, ATAZANAVIR SULFATE [Interacting]
     Active Substance: ATAZANAVIR SULFATE\RITONAVIR
     Indication: HIV INFECTION CDC CATEGORY A
     Route: 065
  2. EMTRIVA [Suspect]
     Active Substance: EMTRICITABINE
     Indication: HIV INFECTION
     Route: 065
  3. OMEPRAZOLE. [Interacting]
     Active Substance: OMEPRAZOLE
     Indication: DYSPEPSIA
     Route: 065
  4. VIREAD [Interacting]
     Active Substance: TENOFOVIR DISOPROXIL FUMARATE
     Indication: HIV INFECTION CDC CATEGORY A
     Route: 065

REACTIONS (3)
  - Drug interaction [Unknown]
  - Inhibitory drug interaction [Unknown]
  - Blood HIV RNA increased [Recovered/Resolved]
